FAERS Safety Report 4891176-0 (Version None)
Quarter: 2006Q1

REPORT INFORMATION
  Report Type: 
  Country: None (occurrence: None)
  Receive Date: 20060125
  Receipt Date: 20060118
  Transmission Date: 20060701
  Serious: Yes (Hospitalization)
  Sender: FDA-Public Use
  Company Number: 2005-US-00098

PATIENT
  Age: 44 Year
  Sex: Male
  Weight: 115 kg

DRUGS (6)
  1. WELLBUTRIN XL [Suspect]
     Indication: DEPRESSION
     Dosage: 450MG TWICE PER DAY
     Route: 048
  2. CLOZAPINE [Suspect]
     Indication: SCHIZOAFFECTIVE DISORDER
     Dosage: 300MG PER DAY
     Route: 048
     Dates: start: 20010401, end: 20050901
  3. LITHIUM CARBONATE [Concomitant]
     Indication: MOOD SWINGS
     Dosage: 450MG TWICE PER DAY
     Route: 048
  4. IPRATROPIUM BROMIDE [Concomitant]
     Indication: DYSPNOEA
     Route: 065
  5. SALBUTAMOL [Concomitant]
     Indication: DYSPNOEA
     Route: 065
  6. BENZTROPINE MESYLATE [Concomitant]

REACTIONS (3)
  - CARDIAC ARREST [None]
  - PNEUMONIA [None]
  - RESPIRATORY ARREST [None]
